FAERS Safety Report 11371055 (Version 1)
Quarter: 2015Q3

REPORT INFORMATION
  Report Type: Spontaneous
  Country: US (occurrence: US)
  Receive Date: 20150812
  Receipt Date: 20150812
  Transmission Date: 20151125
  Serious: Yes (Hospitalization, Other)
  Sender: FDA-Public Use
  Company Number: US-GLAXOSMITHKLINE-US2015114217

PATIENT
  Sex: Male

DRUGS (4)
  1. NORVASC [Concomitant]
     Active Substance: AMLODIPINE BESYLATE
  2. ADVAIR DISKUS [Suspect]
     Active Substance: FLUTICASONE PROPIONATE\SALMETEROL XINAFOATE
     Indication: LUNG DISORDER
     Dosage: 1 PUFF(S), QD
     Route: 055
  3. VENTOLIN HFA [Suspect]
     Active Substance: ALBUTEROL SULFATE
     Indication: LUNG DISORDER
     Dosage: 2 PUFF(S), PRN
     Route: 055
  4. VERAPAMIL [Concomitant]
     Active Substance: VERAPAMIL HYDROCHLORIDE

REACTIONS (13)
  - Cardiovascular disorder [Recovered/Resolved with Sequelae]
  - Leg amputation [Recovered/Resolved]
  - Post procedural complication [Not Recovered/Not Resolved]
  - Pain in extremity [Not Recovered/Not Resolved]
  - Gangrene [Recovered/Resolved with Sequelae]
  - Myocardial infarction [Recovered/Resolved]
  - Prostatic disorder [Recovered/Resolved]
  - Coronary artery bypass [Recovered/Resolved]
  - Toe amputation [Recovered/Resolved]
  - Prostatic operation [Recovered/Resolved]
  - Coronary artery bypass [Recovered/Resolved with Sequelae]
  - Wrong patient received medication [Unknown]
  - Blister [Recovered/Resolved with Sequelae]

NARRATIVE: CASE EVENT DATE: 2013
